FAERS Safety Report 10385005 (Version 1)
Quarter: 2014Q3

REPORT INFORMATION
  Report Type: Spontaneous
  Country: JP (occurrence: JP)
  Receive Date: 20140814
  Receipt Date: 20140814
  Transmission Date: 20150326
  Serious: Yes (Death)
  Sender: FDA-Public Use
  Company Number: PHHY2005JP008000

PATIENT
  Age: 56 Year
  Sex: Male

DRUGS (1)
  1. GLIVEC [Suspect]
     Active Substance: IMATINIB MESYLATE
     Indication: BLAST CRISIS IN MYELOGENOUS LEUKAEMIA
     Dates: start: 20031103

REACTIONS (3)
  - Hepatic failure [Fatal]
  - Haematemesis [Fatal]
  - Melaena [Fatal]
